FAERS Safety Report 4811804-5 (Version None)
Quarter: 2005Q4

REPORT INFORMATION
  Report Type: 
  Country: None (occurrence: None)
  Receive Date: 20051027
  Receipt Date: 20051027
  Transmission Date: 20060501
  Serious: Yes (Hospitalization)
  Sender: FDA-Public Use
  Company Number: None

PATIENT
  Age: 49 Year
  Sex: Male
  Weight: 57.6068 kg

DRUGS (8)
  1. KETEK [Suspect]
     Indication: RESPIRATORY DISORDER
     Dosage: 800 MG DAILY? HIST  ORAL  NOT CLEAR
     Route: 048
  2. KETEK [Suspect]
     Indication: SINUSITIS
     Dosage: 800 MG DAILY? HIST  ORAL  NOT CLEAR
     Route: 048
  3. SINGULAIR [Concomitant]
  4. PULMICORT [Concomitant]
  5. FORIDIL [Concomitant]
  6. ASTELIN [Concomitant]
  7. TORADOL [Concomitant]
  8. EPIPEN [Concomitant]

REACTIONS (5)
  - ABDOMINAL PAIN [None]
  - CHILLS [None]
  - HEPATOCELLULAR DAMAGE [None]
  - NAUSEA [None]
  - VOMITING [None]
